FAERS Safety Report 20268381 (Version 1)
Quarter: 2021Q4

REPORT INFORMATION
  Report Type: Spontaneous
  Country: US (occurrence: US)
  Receive Date: 20211231
  Receipt Date: 20211231
  Transmission Date: 20220303
  Serious: No
  Sender: FDA-Public Use
  Company Number: US-COOPERSURGICAL, INC.-US-2021CPS000259

PATIENT
  Age: 37 Year
  Sex: Female
  Weight: 64.399 kg

DRUGS (5)
  1. PARAGARD T 380A [Suspect]
     Active Substance: COPPER
     Indication: Contraception
     Dosage: UNK
     Route: 015
     Dates: start: 20201223, end: 20210108
  2. CLARITIN                           /00413701/ [Concomitant]
     Indication: Hypersensitivity
     Dosage: UNK
     Route: 065
  3. FLONASE                            /00908302/ [Concomitant]
     Indication: Hypersensitivity
     Dosage: UNK
     Route: 065
  4. XYREM [Concomitant]
     Active Substance: SODIUM OXYBATE
     Indication: Product used for unknown indication
     Dosage: UNK
     Route: 065
  5. PROAIR                             /00139502/ [Concomitant]
     Indication: Asthma
     Dosage: UNK
     Route: 065

REACTIONS (3)
  - Abdominal distension [Recovered/Resolved]
  - Pelvic pain [Recovered/Resolved]
  - Device dislocation [Recovered/Resolved]

NARRATIVE: CASE EVENT DATE: 20201223
